FAERS Safety Report 5987164-3 (Version None)
Quarter: 2008Q4

REPORT INFORMATION
  Report Type: 
  Country: None (occurrence: None)
  Receive Date: 20081209
  Receipt Date: 20081128
  Transmission Date: 20090506
  Serious: Yes (Other)
  Sender: FDA-Public Use
  Company Number: JP-PFIZER INC-2008101319

PATIENT

DRUGS (6)
  1. VORICONAZOLE [Interacting]
     Indication: ANTIFUNGAL PROPHYLAXIS
     Route: 042
  2. VORICONAZOLE [Interacting]
     Route: 042
  3. EPLERENONE [Interacting]
     Indication: HYPERTENSION
     Route: 048
  4. NIFEDIPINE [Suspect]
     Indication: HYPERTENSION
     Route: 048
  5. NIFEDIPINE [Interacting]
     Route: 048
  6. CANDESARTAN [Concomitant]
     Indication: HYPERTENSION
     Route: 048

REACTIONS (2)
  - DRUG INTERACTION [None]
  - HYPOTENSION [None]
